FAERS Safety Report 14890444 (Version 2)
Quarter: 2019Q1

REPORT INFORMATION
  Report Type: Spontaneous
  Country: IT (occurrence: IT)
  Receive Date: 20180514
  Receipt Date: 20190306
  Transmission Date: 20190417
  Serious: Yes (Hospitalization, Other)
  Sender: FDA-Public Use
  Company Number: IT-ACCORD-066972

PATIENT
  Age: 48 Year
  Sex: Female

DRUGS (1)
  1. LEVETIRACETAM. [Suspect]
     Active Substance: LEVETIRACETAM
     Indication: EPILEPSY
     Dosage: TITRATED UP TO 1000 MG WITHIN 2 DAYS,500 MG
     Route: 042

REACTIONS (1)
  - Rhabdomyolysis [Recovered/Resolved]
